FAERS Safety Report 4629481-5 (Version None)
Quarter: 2005Q2

REPORT INFORMATION
  Report Type: 
  Country: None (occurrence: None)
  Receive Date: 20050405
  Receipt Date: 20050324
  Transmission Date: 20051028
  Serious: Yes (Hospitalization)
  Sender: FDA-Public Use
  Company Number: 2005AP01913

PATIENT
  Age: 70 Year
  Sex: Male

DRUGS (1)
  1. IRESSA [Suspect]
     Indication: NON-SMALL CELL LUNG CANCER
     Dosage: 250 MG DAILY PO
     Route: 048
     Dates: start: 20050125, end: 20050228

REACTIONS (6)
  - HAEMATURIA [None]
  - HYPERSENSITIVITY [None]
  - PERIPHERAL VASCULAR DISORDER [None]
  - PURPURA [None]
  - RENAL DISORDER [None]
  - VASCULAR INJURY [None]
